FAERS Safety Report 10460874 (Version 1)
Quarter: 2014Q3

REPORT INFORMATION
  Report Type: Spontaneous
  Country: GR (occurrence: GR)
  Receive Date: 20140918
  Receipt Date: 20140918
  Transmission Date: 20150326
  Serious: Yes (Other)
  Sender: FDA-Public Use
  Company Number: GR-AMGEN-GRCSP2014070806

PATIENT
  Age: 78 Year
  Sex: Female

DRUGS (3)
  1. APROVEL [Concomitant]
     Active Substance: IRBESARTAN
     Dosage: 400 UNK, UNK
  2. PROLIA [Suspect]
     Active Substance: DENOSUMAB
     Indication: OSTEOPOROSIS
     Dosage: 60 MG, Q6MO
     Route: 065
  3. CALCIORAL                          /00207901/ [Concomitant]

REACTIONS (3)
  - Eye swelling [Not Recovered/Not Resolved]
  - Vision blurred [Not Recovered/Not Resolved]
  - Headache [Not Recovered/Not Resolved]
